FAERS Safety Report 10996015 (Version 2)
Quarter: 2015Q2

REPORT INFORMATION
  Report Type: Spontaneous
  Country: US (occurrence: US)
  Receive Date: 20150407
  Receipt Date: 20150525
  Transmission Date: 20150821
  Serious: No
  Sender: FDA-Public Use
  Company Number: US-JNJFOC-20140821207

PATIENT
  Age: 64 Year
  Sex: Female

DRUGS (2)
  1. NAPROXEN. [Suspect]
     Active Substance: NAPROXEN
     Indication: PRODUCT USED FOR UNKNOWN INDICATION
     Route: 065
     Dates: end: 2014
  2. REMICADE [Suspect]
     Active Substance: INFLIXIMAB
     Indication: COMPLEX REGIONAL PAIN SYNDROME
     Route: 042
     Dates: start: 201406, end: 201406

REACTIONS (2)
  - Feeling abnormal [Not Recovered/Not Resolved]
  - Product use issue [Unknown]

NARRATIVE: CASE EVENT DATE: 201406
